FAERS Safety Report 5255223-9 (Version None)
Quarter: 2007Q1

REPORT INFORMATION
  Report Type: 
  Country: None (occurrence: None)
  Receive Date: 20070305
  Receipt Date: 20070222
  Transmission Date: 20070707
  Serious: Yes (Other)
  Sender: FDA-Public Use
  Company Number: GB-ROCHE-484955

PATIENT
  Age: 49 Year
  Sex: Female
  Weight: 130 kg

DRUGS (8)
  1. ORLISTAT [Suspect]
     Indication: OBESITY
     Route: 048
     Dates: start: 20061117, end: 20061119
  2. ORLISTAT [Suspect]
     Route: 048
     Dates: start: 20061201
  3. ASPIRIN [Concomitant]
     Route: 048
  4. BENDROFLUAZIDE [Concomitant]
     Indication: HYPERTENSION
     Route: 048
  5. ENALAPRIL MALEATE [Concomitant]
     Indication: HYPERTENSION
     Route: 048
  6. MYCOPHENOLATE MOFETIL [Concomitant]
     Indication: LIVER TRANSPLANT
     Route: 048
  7. PREDNISOLONE [Concomitant]
     Route: 048
  8. TACROLIMUS [Concomitant]
     Indication: LIVER TRANSPLANT
     Route: 048

REACTIONS (1)
  - GOUT [None]
